FAERS Safety Report 6061941-5 (Version None)
Quarter: 2009Q1

REPORT INFORMATION
  Report Type: 
  Country: None (occurrence: None)
  Receive Date: 20090202
  Receipt Date: 20090128
  Transmission Date: 20090719
  Serious: Yes (Life-Threatening)
  Sender: FDA-Public Use
  Company Number: PHHY2009IT03303

PATIENT
  Sex: Female

DRUGS (2)
  1. TORECAN [Suspect]
     Indication: VERTIGO
     Dosage: 2.6 MG, 4 SUPPOSITORIES IN 24 HRS
     Dates: start: 20081114, end: 20081114
  2. VERTISERC [Concomitant]
     Dosage: 5 TABLETS IN 24 HRS
     Route: 048

REACTIONS (4)
  - EPILEPSY [None]
  - INCONTINENCE [None]
  - LOSS OF CONSCIOUSNESS [None]
  - TONIC CLONIC MOVEMENTS [None]
